FAERS Safety Report 6782785-2 (Version None)
Quarter: 2010Q2

REPORT INFORMATION
  Report Type: 
  Country: None (occurrence: None)
  Receive Date: 20100616
  Receipt Date: 20100609
  Transmission Date: 20101027
  Serious: Yes (Life-Threatening, Hospitalization)
  Sender: FDA-Public Use
  Company Number: 2010EU002297

PATIENT
  Age: 45 Year
  Sex: Male
  Weight: 54 kg

DRUGS (14)
  1. PROTOPIC [Suspect]
     Indication: DERMATITIS EXFOLIATIVE
     Dosage: UNK, TOPICAL
     Route: 061
     Dates: start: 20100406, end: 20100428
  2. SUBOXONE [Suspect]
     Indication: DRUG DEPENDENCE
     Dosage: UNK, SUBLINGUAL
     Route: 060
     Dates: start: 20090104
  3. PENTASA [Concomitant]
  4. REFUSAL (DISULFIRAM) [Concomitant]
  5. ACETAMINOPHEN [Concomitant]
  6. TEMAZEPAM [Concomitant]
  7. MOVICOLON (MACROGOL, POTASSIUM CHLORIDE, SODIUM BICARBONATE, SODIUM CH [Concomitant]
  8. PAROXETINE HCL [Concomitant]
  9. SELOKEEN (METOPROLOL SUCCINATE) [Concomitant]
  10. SELOKEEN (METOPROLOL SUCCINATE) [Concomitant]
  11. PANTOZOL (ERYTHROMYCIN ETHYLSUCCINATE) [Concomitant]
  12. DIAZEPAM [Concomitant]
  13. CHLOORTALIDON (CHLORTALIDONE) [Concomitant]
  14. AMLODIPINE [Concomitant]

REACTIONS (10)
  - CONFUSIONAL STATE [None]
  - COORDINATION ABNORMAL [None]
  - DEPRESSED LEVEL OF CONSCIOUSNESS [None]
  - DRUG LEVEL INCREASED [None]
  - HALLUCINATION [None]
  - HEPATIC FAILURE [None]
  - HYPOCALCAEMIA [None]
  - HYPOMAGNESAEMIA [None]
  - POTENTIATING DRUG INTERACTION [None]
  - PSYCHOTIC DISORDER [None]
